FAERS Safety Report 13846222 (Version 1)
Quarter: 2017Q3

REPORT INFORMATION
  Report Type: Spontaneous
  Country: US (occurrence: US)
  Receive Date: 20170808
  Receipt Date: 20170808
  Transmission Date: 20171127
  Serious: No
  Sender: FDA-Public Use
  Company Number: US-ROCHE-734131

PATIENT
  Sex: Female

DRUGS (1)
  1. BONIVA [Suspect]
     Active Substance: IBANDRONATE SODIUM
     Indication: OSTEOPOROSIS
     Dosage: DOSE: 150 (NO UNIT)
     Route: 048
     Dates: start: 2007, end: 2009

REACTIONS (2)
  - Temporomandibular joint syndrome [Not Recovered/Not Resolved]
  - Bone pain [Unknown]

NARRATIVE: CASE EVENT DATE: 2007
